FAERS Safety Report 13769831 (Version 2)
Quarter: 2017Q4

REPORT INFORMATION
  Report Type: Spontaneous
  Country: FR (occurrence: FR)
  Receive Date: 20170719
  Receipt Date: 20171004
  Transmission Date: 20180320
  Serious: Yes (Other)
  Sender: FDA-Public Use
  Company Number: FR-MIST-STN-2017-0542

PATIENT
  Age: 58 Year
  Sex: Male
  Weight: 92 kg

DRUGS (2)
  1. SPEDRA (AVANAFIL) TABLETS [Suspect]
     Active Substance: AVANAFIL
     Indication: ERECTILE DYSFUNCTION
     Dosage: AS NEEDED
     Route: 048
     Dates: start: 20170703, end: 20170703
  2. ESCITALOPRAM [Concomitant]
     Active Substance: ESCITALOPRAM OXALATE
     Indication: PRODUCT USED FOR UNKNOWN INDICATION
     Route: 048
     Dates: start: 20170421

REACTIONS (5)
  - Premature ejaculation [Recovered/Resolved]
  - Crying [Recovered/Resolved]
  - Amnesia [Recovered/Resolved]
  - Altered state of consciousness [Recovered/Resolved]
  - Disturbance in attention [Recovered/Resolved]

NARRATIVE: CASE EVENT DATE: 20170703
